FAERS Safety Report 8812971 (Version 1)
Quarter: 2012Q4

REPORT INFORMATION
  Report Type: 
  Country: US (occurrence: US)
  Receive Date: 20120927
  Receipt Date: 20120927
  Transmission Date: 20130627
  Serious: No
  Sender: FDA-Public Use
  Company Number: US-AMGEN-USASP2012036342

PATIENT
  Age: 68 Year
  Sex: Female
  Weight: 78.01 kg

DRUGS (7)
  1. PROLIA [Suspect]
     Indication: OSTEOPOROSIS POSTMENOPAUSAL
     Dosage: 60 mg, q6mo
     Route: 058
     Dates: start: 20111115
  2. PREVACID [Concomitant]
     Dosage: UNK
  3. CALCIUM [Concomitant]
     Dosage: UNK
  4. MULTIVITAMIN                       /00831701/ [Concomitant]
     Dosage: 60 mg, q6mo
     Dates: start: 201105
  5. SYNTHROID [Concomitant]
     Dosage: UNK
  6. VITAMIN D /00107901/ [Concomitant]
     Dosage: UNK
  7. NEXIUM                             /01479302/ [Concomitant]
     Dosage: UNK

REACTIONS (3)
  - Pain [Recovered/Resolved]
  - Urticaria [Recovered/Resolved]
  - Drug hypersensitivity [Unknown]
